FAERS Safety Report 8595903-0 (Version None)
Quarter: 2012Q3

REPORT INFORMATION
  Report Type: 
  Country: None (occurrence: None)
  Receive Date: 20120807
  Receipt Date: 20120807
  Transmission Date: 20120928
  Serious: No
  Sender: FDA-Public Use
  Company Number: None

PATIENT

DRUGS (1)
  1. VENLAFAXINE [Suspect]
     Dosage: 75G BID PO
     Route: 048
     Dates: start: 20110611

REACTIONS (2)
  - ANGER [None]
  - IRRITABILITY [None]
